FAERS Safety Report 25191396 (Version 1)
Quarter: 2025Q2

REPORT INFORMATION
  Report Type: Spontaneous
  Country: JP (occurrence: JP)
  Receive Date: 20250411
  Receipt Date: 20250411
  Transmission Date: 20250717
  Serious: Yes (Life-Threatening, Hospitalization, Other)
  Sender: MERCK SHARP AND DOHME
  Company Number: JP-MSD-M2023-46127

PATIENT
  Age: 61 Year
  Sex: Female
  Weight: 48 kg

DRUGS (8)
  1. KEYTRUDA [Suspect]
     Active Substance: PEMBROLIZUMAB
     Indication: Squamous cell carcinoma of the cervix
  2. KEYTRUDA [Suspect]
     Active Substance: PEMBROLIZUMAB
     Indication: Squamous cell carcinoma of the cervix
     Dosage: DOSE DESCRIPTION : 200 MILLIGRAM, Q3W?DAILY DOSE : 9.4 MILLIGRAM?REGIMEN DOSE : 1400  MILLIGRAM
     Route: 041
     Dates: start: 20221118, end: 20230404
  3. KEYTRUDA [Suspect]
     Active Substance: PEMBROLIZUMAB
     Indication: Squamous cell carcinoma of the cervix
     Dosage: DOSE DESCRIPTION : 200 MILLIGRAM, Q3W?DAILY DOSE : 9.4 MILLIGRAM?REGIMEN DOSE : 200  MILLIGRAM
     Route: 041
     Dates: start: 20230511, end: 2023
  4. KEYTRUDA [Suspect]
     Active Substance: PEMBROLIZUMAB
     Indication: Squamous cell carcinoma of the cervix
     Dosage: DOSE DESCRIPTION : 200 MILLIGRAM, Q3W?DAILY DOSE : 9.4 MILLIGRAM?REGIMEN DOSE : 200  MILLIGRAM
     Route: 041
     Dates: start: 20231113
  5. CARBOPLATIN [Concomitant]
     Active Substance: CARBOPLATIN
     Indication: Squamous cell carcinoma of the cervix
     Dosage: DOSE DESCRIPTION : 431 MILLIGRAM, Q3W?DAILY DOSE : 20.257 MILLIGRAM?REGIMEN DOSE : 3017  MILLIGRAM
     Route: 041
     Dates: start: 20221118, end: 20230404
  6. PACLITAXEL [Concomitant]
     Active Substance: PACLITAXEL
     Indication: Squamous cell carcinoma of the cervix
     Dosage: DOSE DESCRIPTION : 259 MILLIGRAM, Q3W?DAILY DOSE : 12.173 MILLIGRAM?REGIMEN DOSE : 1813  MILLIGRAM
     Route: 041
     Dates: start: 20221118, end: 20230404
  7. AVASTIN [Concomitant]
     Active Substance: BEVACIZUMAB
     Indication: Squamous cell carcinoma of the cervix
     Dosage: DOSE DESCRIPTION : 760 MILLIGRAM, Q3W?DAILY DOSE : 35.72 MILLIGRAM?REGIMEN DOSE : 5320  MILLIGRAM
     Route: 065
     Dates: start: 20221118, end: 20230404
  8. AVASTIN [Concomitant]
     Active Substance: BEVACIZUMAB
     Indication: Squamous cell carcinoma of the cervix
     Dosage: DOSE DESCRIPTION : 760 MILLIGRAM, Q3W?DAILY DOSE : 35.72 MILLIGRAM?REGIMEN DOSE : 760  MILLIGRAM
     Route: 065
     Dates: start: 20230511

REACTIONS (1)
  - Fulminant type 1 diabetes mellitus [Recovering/Resolving]

NARRATIVE: CASE EVENT DATE: 20231026
